FAERS Safety Report 19026514 (Version 1)
Quarter: 2021Q1

REPORT INFORMATION
  Report Type: Report from Study
  Country: KR (occurrence: KR)
  Receive Date: 20210318
  Receipt Date: 20210318
  Transmission Date: 20210420
  Serious: Yes (Hospitalization, Other)
  Sender: FDA-Public Use
  Company Number: KR-TAKEDA-2020TUS026309

PATIENT

DRUGS (14)
  1. PONATINIB [Suspect]
     Active Substance: PONATINIB
     Dosage: 45 MILLIGRAM, QD
     Route: 048
     Dates: start: 20200424
  2. URSA [Concomitant]
     Active Substance: URSODIOL
     Indication: HEPATIC STEATOSIS
     Dosage: 100 MILLIGRAM, BID
     Route: 048
     Dates: start: 20190905
  3. MECKOOL [Concomitant]
     Indication: PROPHYLAXIS OF NAUSEA AND VOMITING
     Dosage: 10 MILLIGRAM, TID
     Route: 042
     Dates: start: 20200311, end: 20200317
  4. PONATINIB [Suspect]
     Active Substance: PONATINIB
     Indication: CHRONIC MYELOID LEUKAEMIA
     Dosage: 45 MILLIGRAM, QD
     Route: 048
     Dates: start: 20191213, end: 20200306
  5. DIOVAN [Concomitant]
     Active Substance: VALSARTAN
     Indication: HYPERTENSION
     Dosage: 80 MILLIGRAM, QD
     Route: 048
     Dates: start: 20200123
  6. NASERON [Concomitant]
     Active Substance: RAMOSETRON HYDROCHLORIDE
     Indication: PROPHYLAXIS OF NAUSEA AND VOMITING
     Dosage: 0.3 MILLIGRAM, QD
     Route: 042
     Dates: start: 20200311, end: 20200312
  7. IDARUBICIN [Concomitant]
     Active Substance: IDARUBICIN
     Indication: CHRONIC MYELOID LEUKAEMIA
     Dosage: 12 MILLIGRAM, QD
     Route: 042
     Dates: start: 20200311, end: 20200315
  8. DUPHALAC EASY [Concomitant]
     Active Substance: LACTULOSE
     Indication: CONSTIPATION PROPHYLAXIS
     Dosage: 30 MILLILITER, BID
     Route: 048
     Dates: start: 20200313, end: 20200313
  9. ZYLORIC [Concomitant]
     Active Substance: ALLOPURINOL
     Indication: SUPPLEMENTATION THERAPY
     Dosage: 300 MILLIGRAM, QD
     Route: 048
     Dates: start: 20200311, end: 20200315
  10. FLUTIFORM [Concomitant]
     Active Substance: FLUTICASONE PROPIONATE\FORMOTEROL FUMARATE
     Indication: COUGH
     Dosage: UNK
     Route: 065
     Dates: start: 20190628
  11. STOGAR [Concomitant]
     Active Substance: LAFUTIDINE
     Indication: PROPHYLAXIS AGAINST GASTROINTESTINAL ULCER
     Dosage: 10 MILLIGRAM, BID
     Route: 048
     Dates: start: 20200526, end: 20200601
  12. DEXTROSE WATER [Concomitant]
     Active Substance: DEXTROSE
     Indication: DEHYDRATION
     Dosage: 500 MILLILITER, QID
     Route: 042
     Dates: start: 20200213, end: 20200213
  13. CYTARABINE. [Concomitant]
     Active Substance: CYTARABINE
     Indication: CHRONIC MYELOID LEUKAEMIA
     Dosage: 1 GRAM, BID
     Route: 042
     Dates: start: 20200311, end: 20200313
  14. PLUNAZOLE [Concomitant]
     Indication: SUPPLEMENTATION THERAPY
     Dosage: 300 MILLIGRAM, QD
     Route: 048
     Dates: start: 20200311, end: 20200331

REACTIONS (7)
  - Atypical pneumonia [Recovered/Resolved]
  - Lymphadenopathy [Recovered/Resolved]
  - Dermatitis contact [Recovered/Resolved]
  - Hyperglycaemia [Recovered/Resolved]
  - Febrile neutropenia [Recovered/Resolved]
  - Dyspnoea [Recovered/Resolved]
  - Pyrexia [Recovered/Resolved]

NARRATIVE: CASE EVENT DATE: 20200213
